FAERS Safety Report 6294919-7 (Version None)
Quarter: 2009Q3

REPORT INFORMATION
  Report Type: 
  Country: None (occurrence: None)
  Receive Date: 20090803
  Receipt Date: 20090729
  Transmission Date: 20100115
  Serious: Yes (Life-Threatening)
  Sender: FDA-Public Use
  Company Number: JP-ASTRAZENECA-2008AP08827

PATIENT
  Age: 42 Year
  Sex: Male
  Weight: 65 kg

DRUGS (6)
  1. OMEPRAL [Suspect]
     Indication: REFLUX OESOPHAGITIS
     Route: 048
     Dates: start: 20080724, end: 20080814
  2. PROPOFOL [Suspect]
     Route: 042
  3. ANZIEF [Suspect]
     Indication: HYPERURICAEMIA
     Route: 048
     Dates: start: 20080724, end: 20080814
  4. MICARDIS [Concomitant]
     Indication: HYPERTENSION
     Route: 048
     Dates: end: 20080724
  5. AMLODIPINE [Concomitant]
     Indication: HYPERTENSION
     Route: 048
     Dates: end: 20080822
  6. WARFARIN SODIUM [Concomitant]
     Indication: ANEURYSM
     Route: 048
     Dates: end: 20080822

REACTIONS (6)
  - BLOOD AMYLASE INCREASED [None]
  - ERYTHEMA MULTIFORME [None]
  - LYMPHOCYTE STIMULATION TEST POSITIVE [None]
  - PLEURAL EFFUSION [None]
  - PNEUMONIA STAPHYLOCOCCAL [None]
  - TOXIC EPIDERMAL NECROLYSIS [None]
